FAERS Safety Report 10955889 (Version 8)
Quarter: 2018Q4

REPORT INFORMATION
  Report Type: Spontaneous
  Country: FR (occurrence: FR)
  Receive Date: 20150326
  Receipt Date: 20181031
  Transmission Date: 20190204
  Serious: Yes (Hospitalization, Other)
  Sender: FDA-Public Use
  Company Number: FR-JNJFOC-20150309783

PATIENT
  Age: 74 Year
  Sex: Female

DRUGS (6)
  1. STELARA [Suspect]
     Active Substance: USTEKINUMAB
     Indication: PSORIASIS
     Route: 058
     Dates: start: 201207, end: 201408
  2. MICARDIS [Concomitant]
     Active Substance: TELMISARTAN
     Dosage: INITIATED FROM LONG TIME
     Route: 048
  3. TEMESTA [LORAZEPAM] [Concomitant]
     Active Substance: LORAZEPAM
     Route: 048
  4. PRAVACHOL (PRAVASTATIN SODIUM) [Concomitant]
     Route: 048
  5. FLUINDIONE [Concomitant]
     Active Substance: FLUINDIONE
     Route: 048
     Dates: start: 201212
  6. CLOBEX [Concomitant]
     Active Substance: CLOBETASOL PROPIONATE
     Dosage: 50 UG/G, 2 SHAMPOOS
     Route: 003

REACTIONS (2)
  - Pulmonary embolism [Recovered/Resolved]
  - Phlebitis [Recovered/Resolved]

NARRATIVE: CASE EVENT DATE: 201212
